FAERS Safety Report 4276639-3 (Version None)
Quarter: 2004Q1

REPORT INFORMATION
  Report Type: 
  Country: None (occurrence: None)
  Receive Date: 20040120
  Receipt Date: 20040109
  Transmission Date: 20041129
  Serious: Yes (Other)
  Sender: FDA-Public Use
  Company Number: 2004-01-0691

PATIENT
  Age: 3 Year
  Sex: Male

DRUGS (2)
  1. CLARITIN [Suspect]
     Indication: LACRIMATION INCREASED
     Dosage: QPM ORAL
     Route: 048
     Dates: start: 20040107
  2. CLARITIN [Suspect]
     Indication: PRURITUS
     Dosage: QPM ORAL
     Route: 048
     Dates: start: 20040107

REACTIONS (1)
  - HALLUCINATION, VISUAL [None]
